FAERS Safety Report 26171220 (Version 1)
Quarter: 2025Q4

REPORT INFORMATION
  Report Type: Spontaneous
  Country: JP (occurrence: JP)
  Receive Date: 20251217
  Receipt Date: 20251217
  Transmission Date: 20260117
  Serious: Yes (Hospitalization)
  Sender: EISAI
  Company Number: JP-Eisai-202511919_ART-DLB_P_1

PATIENT
  Sex: Female

DRUGS (2)
  1. DONEPEZIL [Suspect]
     Active Substance: DONEPEZIL
     Indication: Dementia with Lewy bodies
     Dosage: DOSE AND FREQUENCY UNKNOWN
     Route: 048
  2. DONEPEZIL [Suspect]
     Active Substance: DONEPEZIL
     Dosage: FREQUENCY UNKNOWN?DOSE INCREASED
     Route: 048

REACTIONS (5)
  - Poriomania [Recovered/Resolved]
  - Fall [Unknown]
  - Screaming [Recovered/Resolved]
  - Akathisia [Unknown]
  - Restless legs syndrome [Unknown]
